FAERS Safety Report 5674769-2 (Version None)
Quarter: 2008Q1

REPORT INFORMATION
  Report Type: 
  Country: None (occurrence: None)
  Receive Date: 20080320
  Receipt Date: 20080306
  Transmission Date: 20080703
  Serious: Yes (Death, Hospitalization)
  Sender: FDA-Public Use
  Company Number: TR-MERCK-0803TUR00003

PATIENT
  Age: 47 Year
  Sex: Male

DRUGS (11)
  1. CANCIDAS [Suspect]
     Route: 041
  2. CANCIDAS [Suspect]
     Route: 041
  3. PIPERACILLIN SODIUM AND TAZOBACTAM SODIUM [Concomitant]
     Route: 042
  4. AMIKACIN [Concomitant]
     Route: 042
  5. CYTARABINE AND IDARUBICIN HYDROCHLORIDE [Concomitant]
     Route: 065
  6. IMIPENEM [Concomitant]
     Route: 042
  7. AMPHOTERICIN B AND CHOLESTEROL AND DISTEAROYLPHOSPHATIDYLGLYCEROL AND [Concomitant]
     Route: 042
  8. GRANULOCYTE-MACROPHAGE COLONY STIMULATING FACTOR (UNSPECIFIED) [Concomitant]
     Route: 065
  9. VORICONAZOLE [Concomitant]
     Route: 042
  10. VORICONAZOLE [Concomitant]
     Route: 042
  11. INSULIN [Concomitant]
     Route: 042

REACTIONS (4)
  - DISSEMINATED INTRAVASCULAR COAGULATION [None]
  - DRUG INEFFECTIVE [None]
  - FEBRILE NEUTROPENIA [None]
  - FUNGAL SEPSIS [None]
